FAERS Safety Report 23643221 (Version 1)
Quarter: 2024Q1

REPORT INFORMATION
  Report Type: Spontaneous
  Country: US (occurrence: US)
  Receive Date: 20240318
  Receipt Date: 20240318
  Transmission Date: 20240410
  Serious: Yes (Other)
  Sender: FDA-Public Use
  Company Number: US-JNJFOC-20240321807

PATIENT

DRUGS (1)
  1. ERLEADA [Suspect]
     Active Substance: APALUTAMIDE
     Indication: Product used for unknown indication
     Route: 048

REACTIONS (8)
  - Thrombocytopenia [Unknown]
  - Osteoarthritis [Unknown]
  - Metastatic neoplasm [Unknown]
  - Decreased appetite [Unknown]
  - Asthenia [Unknown]
  - Alopecia [Unknown]
  - Hot flush [Unknown]
  - Weight decreased [Unknown]
